APPROVED DRUG PRODUCT: METOLAZONE
Active Ingredient: METOLAZONE
Strength: 5MG
Dosage Form/Route: TABLET;ORAL
Application: A075543 | Product #002
Applicant: ANI PHARMACEUTICALS INC
Approved: Mar 1, 2004 | RLD: No | RS: No | Type: DISCN